FAERS Safety Report 7797781-6 (Version None)
Quarter: 2011Q4

REPORT INFORMATION
  Report Type: 
  Country: None (occurrence: None)
  Receive Date: 20111004
  Receipt Date: 20111004
  Transmission Date: 20120403
  Serious: Yes (Other)
  Sender: FDA-Public Use
  Company Number: None

PATIENT
  Age: 37 Year
  Sex: Female
  Weight: 63.5036 kg

DRUGS (8)
  1. VICODIN [Concomitant]
  2. PRAZOSIN (PRAZOSIN) ) UNSPECIFIED [Concomitant]
  3. LAMOTRIGINE (LAMOTRIGINE) UNSPECIFIED [Concomitant]
  4. LISTERINE WHITENING RINSE VIBRANT WHITE (ORAL CARE PRODUCTS) ORAL RINS [Suspect]
     Indication: DENTAL DISORDER PROPHYLAXIS
     Dosage: 1/2 CAPFUL, ONCE ORAL
     Route: 048
     Dates: start: 20110831, end: 20110831
  5. XANAX [Concomitant]
  6. PAXIL (PAROXETINE HYDROCHLORIDE) UNSPECIFIED [Concomitant]
  7. IRON (IRON) UNSPECIFIED [Concomitant]
  8. CYCLOBENZAPRINE (CYCLOBENZAPRINE) UNSPECIFIED [Concomitant]

REACTIONS (8)
  - GINGIVAL DISORDER [None]
  - LOOSE TOOTH [None]
  - WRONG TECHNIQUE IN DRUG USAGE PROCESS [None]
  - ANAEMIA [None]
  - ORAL DISCOMFORT [None]
  - OROPHARYNGEAL BLISTERING [None]
  - MOUTH HAEMORRHAGE [None]
  - GINGIVAL SWELLING [None]
